FAERS Safety Report 7272222-6 (Version None)
Quarter: 2011Q1

REPORT INFORMATION
  Report Type: 
  Country: None (occurrence: None)
  Receive Date: 20110203
  Receipt Date: 20110121
  Transmission Date: 20110831
  Serious: Yes (Other)
  Sender: FDA-Public Use
  Company Number: PHHY2011JP05311

PATIENT
  Sex: Male

DRUGS (15)
  1. EXCEGRAN [Concomitant]
     Indication: METASTATIC RENAL CELL CARCINOMA
     Dosage: 200 MG, UNK
     Route: 048
  2. WARFARIN SODIUM [Concomitant]
     Indication: METASTATIC RENAL CELL CARCINOMA
     Dosage: 1 MG, UNK
     Route: 048
  3. LASIX [Concomitant]
     Dosage: 40 MG, UNK
     Route: 048
  4. NOVAMIN [Concomitant]
     Dosage: 15 MG, UNK
     Route: 048
  5. AFINITOR [Suspect]
     Indication: METASTATIC RENAL CELL CARCINOMA
     Dosage: 5 MG, UNK
     Route: 048
     Dates: start: 20100729, end: 20100805
  6. HYPEN [Concomitant]
     Dosage: 400 MG, UNK
     Route: 048
  7. TECELEUKIN [Concomitant]
     Indication: METASTATIC RENAL CELL CARCINOMA
     Dates: start: 20080201
  8. URIEF [Concomitant]
     Dosage: 8 MG, UNK
     Route: 048
  9. SORAFENIB TOSILATE [Concomitant]
     Indication: METASTATIC RENAL CELL CARCINOMA
     Route: 048
     Dates: start: 20080527, end: 20100716
  10. AMOBAN [Concomitant]
     Dosage: 7.5 MG, UNK
     Route: 048
  11. INTERFERON ALFA [Concomitant]
     Indication: METASTATIC RENAL CELL CARCINOMA
     Dosage: 3000000 IU, UNK
     Dates: start: 20090722, end: 20100709
  12. PURSENNID [Concomitant]
     Dosage: 24 MG, UNK
     Route: 048
  13. DEPAS [Concomitant]
     Dosage: 2 MG, UNK
     Route: 048
  14. TAKEPRON [Concomitant]
     Dosage: 15 MG, UNK
     Route: 048
  15. BETAMETHASONE [Concomitant]
     Indication: METASTATIC RENAL CELL CARCINOMA
     Dosage: 1 MG, UNK
     Route: 048

REACTIONS (3)
  - BLOOD ALKALINE PHOSPHATASE INCREASED [None]
  - GAMMA-GLUTAMYLTRANSFERASE INCREASED [None]
  - PNEUMONIA ASPIRATION [None]
